FAERS Safety Report 9291235 (Version 5)
Quarter: 2014Q2

REPORT INFORMATION
  Report Type: Spontaneous
  Country: US (occurrence: US)
  Receive Date: 20130515
  Receipt Date: 20140512
  Transmission Date: 20141212
  Serious: Yes (Hospitalization)
  Sender: FDA-Public Use
  Company Number: US-009507513-1305USA009306

PATIENT
  Sex: Male
  Weight: 95.69 kg

DRUGS (3)
  1. PROPECIA [Suspect]
     Indication: ALOPECIA
     Dosage: 1 MG, UNK
     Route: 048
     Dates: start: 20090728, end: 20091015
  2. PEPCID [Concomitant]
  3. PRILOSEC [Concomitant]
     Indication: GASTROOESOPHAGEAL REFLUX DISEASE

REACTIONS (9)
  - Fibula fracture [Unknown]
  - Blood testosterone decreased [Unknown]
  - Knee operation [Unknown]
  - Hypercholesterolaemia [Unknown]
  - Vitamin D decreased [Unknown]
  - Cholelithiasis [Recovered/Resolved]
  - Depression [Unknown]
  - Sexual dysfunction [Not Recovered/Not Resolved]
  - Erectile dysfunction [Unknown]
